FAERS Safety Report 5850562-2 (Version None)
Quarter: 2008Q3

REPORT INFORMATION
  Report Type: 
  Country: None (occurrence: None)
  Receive Date: 20080820
  Receipt Date: 20080808
  Transmission Date: 20090109
  Serious: Yes (Other)
  Sender: FDA-Public Use
  Company Number: FR-JNJFOC-20080802753

PATIENT
  Age: 43 Year
  Sex: Female

DRUGS (4)
  1. INFLIXIMAB [Suspect]
     Indication: RHEUMATOID ARTHRITIS
     Route: 042
  2. ETANERCEPT [Suspect]
     Indication: RHEUMATOID ARTHRITIS
  3. GLUCOCORTICOIDS [Concomitant]
     Dosage: MEAN PREDNISONE, 10 MG/DAY
  4. METHOTREXATE SODIUM [Concomitant]
     Dosage: 10-15 MG/WEEK

REACTIONS (1)
  - HERPES ZOSTER OPHTHALMIC [None]
